FAERS Safety Report 13002281 (Version 3)
Quarter: 2017Q1

REPORT INFORMATION
  Report Type: Spontaneous
  Country: US (occurrence: US)
  Receive Date: 20161206
  Receipt Date: 20170103
  Transmission Date: 20170428
  Serious: No
  Sender: FDA-Public Use
  Company Number: US-PFIZER INC-2016554780

PATIENT

DRUGS (2)
  1. ZOFRAN [Suspect]
     Active Substance: ONDANSETRON HYDROCHLORIDE
     Dosage: UNK
  2. DYLOJECT [Suspect]
     Active Substance: DICLOFENAC SODIUM
     Dosage: 37.5 MG/ML 2ML FLIPTOP VIAL

REACTIONS (2)
  - Drug administered at inappropriate site [Unknown]
  - Product solubility abnormal [Unknown]
